FAERS Safety Report 7081862-9 (Version None)
Quarter: 2010Q4

REPORT INFORMATION
  Report Type: 
  Country: None (occurrence: None)
  Receive Date: 20101103
  Receipt Date: 20101025
  Transmission Date: 20110411
  Serious: Yes (Other)
  Sender: FDA-Public Use
  Company Number: US-AMGEN-QUU428605

PATIENT

DRUGS (4)
  1. ENBREL [Suspect]
     Indication: RHEUMATOID ARTHRITIS
     Dosage: 50 MG, QWK
     Route: 058
     Dates: start: 20100301, end: 20100801
  2. METHOTREXATE [Concomitant]
     Dosage: 12.5 MG, QWK
     Route: 048
  3. FOLATE SODIUM [Concomitant]
     Dosage: 1 MG, BID
     Route: 048
  4. CORTICOSTEROIDS [Concomitant]

REACTIONS (5)
  - CATARACT [None]
  - DERMATITIS PSORIASIFORM [None]
  - OEDEMA PERIPHERAL [None]
  - PRECANCEROUS SKIN LESION [None]
  - RHEUMATOID ARTHRITIS [None]
